FAERS Safety Report 7421970-3 (Version None)
Quarter: 2011Q2

REPORT INFORMATION
  Report Type: 
  Country: None (occurrence: None)
  Receive Date: 20110418
  Receipt Date: 20110408
  Transmission Date: 20111010
  Serious: Yes (Other)
  Sender: FDA-Public Use
  Company Number: US-ASTRAZENECA-2011SE21421

PATIENT
  Age: 63 Year
  Sex: Female
  Weight: 134.7 kg

DRUGS (7)
  1. SEROQUEL [Suspect]
     Route: 048
  2. RANITIDINE [Concomitant]
  3. LISINOPRIL [Concomitant]
  4. LOVASTATIN [Concomitant]
  5. LORAZEPAM [Concomitant]
  6. SEROQUEL [Suspect]
     Indication: BIPOLAR DISORDER
     Route: 048
     Dates: start: 20060101
  7. HYDROCHLOROTHIAZIDE [Concomitant]

REACTIONS (5)
  - RENAL FAILURE CHRONIC [None]
  - BLOOD PRESSURE INCREASED [None]
  - FEELING ABNORMAL [None]
  - WEIGHT DECREASED [None]
  - DIABETES MELLITUS [None]
